FAERS Safety Report 4749423-1 (Version None)
Quarter: 2005Q3

REPORT INFORMATION
  Report Type: 
  Country: None (occurrence: None)
  Receive Date: 20050819
  Receipt Date: 20050506
  Transmission Date: 20060218
  Serious: Yes (Hospitalization, Disabling)
  Sender: FDA-Public Use
  Company Number: US-MERCK-0505USA00859

PATIENT
  Age: 63 Year
  Sex: Male
  Weight: 95 kg

DRUGS (7)
  1. VIOXX [Suspect]
     Indication: GOUT
     Route: 048
     Dates: start: 20010123, end: 20040628
  2. VIOXX [Suspect]
     Route: 048
     Dates: start: 20010301, end: 20040628
  3. LEVITRA [Concomitant]
     Route: 065
  4. LORTAB [Concomitant]
     Route: 065
  5. TYLENOL [Concomitant]
     Route: 065
  6. CELEBREX [Concomitant]
     Route: 065
  7. ASPIRIN [Suspect]
     Route: 065

REACTIONS (17)
  - ATHEROSCLEROSIS [None]
  - ATRIOVENTRICULAR BLOCK FIRST DEGREE [None]
  - CARDIAC MURMUR [None]
  - CAROTID ARTERY STENOSIS [None]
  - CEREBROVASCULAR ACCIDENT [None]
  - CHEST PAIN [None]
  - DIABETES MELLITUS NON-INSULIN-DEPENDENT [None]
  - ERECTILE DYSFUNCTION [None]
  - GASTRIC ULCER [None]
  - GASTROINTESTINAL HAEMORRHAGE [None]
  - GASTROOESOPHAGEAL REFLUX DISEASE [None]
  - HYPERTENSION [None]
  - IRON DEFICIENCY ANAEMIA [None]
  - OVERDOSE [None]
  - PEPTIC ULCER [None]
  - RENAL FAILURE [None]
  - VENTRICULAR HYPERTROPHY [None]
